FAERS Safety Report 4847089-3 (Version None)
Quarter: 2005Q4

REPORT INFORMATION
  Report Type: 
  Country: None (occurrence: None)
  Receive Date: 20051206
  Receipt Date: 20051206
  Transmission Date: 20060501
  Serious: Yes (Disabling)
  Sender: FDA-Public Use
  Company Number: None

PATIENT
  Sex: Female
  Weight: 61.6892 kg

DRUGS (2)
  1. FLEBOGAMMA [Suspect]
     Indication: MYASTHENIA GRAVIS
     Dosage: 1GM/KG/DAY  X 2 DAYS     IV
     Route: 042
     Dates: start: 20051202, end: 20051202
  2. FLEBOGAMMA [Suspect]

REACTIONS (3)
  - INFUSION RELATED REACTION [None]
  - PARAESTHESIA ORAL [None]
  - SENSORY DISTURBANCE [None]
